FAERS Safety Report 10740739 (Version 1)
Quarter: 2015Q1

REPORT INFORMATION
  Report Type: Spontaneous
  Country: DK (occurrence: None)
  Receive Date: 20150123
  Receipt Date: 20150123
  Transmission Date: 20150721
  Serious: Yes (Disabling, Other)
  Sender: FDA-Public Use
  Company Number: E2B_80002704

PATIENT
  Age: 60 Year
  Sex: Female

DRUGS (3)
  1. EUTHYROX (LEVOTHYROXINE SODIUM) (LEVOTHYROXINE SODIUM) [Suspect]
     Active Substance: LEVOTHYROXINE SODIUM
     Indication: GOITRE
     Route: 048
     Dates: start: 20100811, end: 201208
  2. ELTROXIN (LEVOTHYROXINE SODIUM) [Suspect]
     Active Substance: LEVOTHYROXINE
     Indication: GOITRE
     Route: 048
     Dates: start: 2003, end: 20100811
  3. IMUREL (AZATHIOPRIN) [Concomitant]
     Active Substance: AZATHIOPRINE SODIUM

REACTIONS (6)
  - Osteoporosis [None]
  - Scoliosis [None]
  - Spinal compression fracture [None]
  - Musculoskeletal discomfort [None]
  - Bone pain [None]
  - Overdose [None]

NARRATIVE: CASE EVENT DATE: 2012
